FAERS Safety Report 21607663 (Version 1)
Quarter: 2022Q4

REPORT INFORMATION
  Report Type: Spontaneous
  Country: GB (occurrence: GB)
  Receive Date: 20221117
  Receipt Date: 20221117
  Transmission Date: 20230113
  Serious: Yes (Death, Other)
  Sender: FDA-Public Use
  Company Number: GB-SUN PHARMACEUTICAL INDUSTRIES LTD-2022RR-363993

PATIENT
  Age: 72 Year
  Sex: Female

DRUGS (2)
  1. MIDAZOLAM [Suspect]
     Active Substance: MIDAZOLAM
     Indication: Sedation
     Dosage: UNK
     Route: 065
     Dates: start: 20211229
  2. MORPHINE [Suspect]
     Active Substance: MORPHINE
     Indication: Sedation
     Dosage: UNK
     Route: 065
     Dates: start: 20211229

REACTIONS (1)
  - Death [Fatal]
